FAERS Safety Report 7409489-7 (Version None)
Quarter: 2011Q1

REPORT INFORMATION
  Report Type: 
  Country: None (occurrence: None)
  Receive Date: 20110301
  Receipt Date: 20100714
  Transmission Date: 20110831
  Serious: Yes (Other)
  Sender: FDA-Public Use
  Company Number: RB-13063-2010

PATIENT
  Sex: Female

DRUGS (4)
  1. SUBOXONE [Suspect]
     Indication: DRUG DEPENDENCE
     Dosage: (4 MG QID TRANSPLACENTAL)
     Route: 064
     Dates: start: 20090901, end: 20091101
  2. SUBUTEX [Suspect]
     Indication: DRUG DEPENDENCE
     Dosage: (4 MG QID TRANSPLACENTAL)
     Route: 064
     Dates: start: 20091101, end: 20100616
  3. LORTAB [Suspect]
     Indication: PAIN
     Dosage: (TRANSPLACENTAL)
     Route: 064
  4. ATIVAN [Suspect]
     Indication: ANXIETY
     Dosage: (TRANSPLACENTAL)
     Route: 064

REACTIONS (2)
  - DRUG WITHDRAWAL SYNDROME NEONATAL [None]
  - DRUG EXPOSURE DURING PREGNANCY [None]
